FAERS Safety Report 9542530 (Version 1)
Quarter: 2013Q3

REPORT INFORMATION
  Report Type: Spontaneous
  Country: US (occurrence: US)
  Receive Date: 20130923
  Receipt Date: 20130923
  Transmission Date: 20140515
  Serious: No
  Sender: FDA-Public Use
  Company Number: US-TEVA-434040USA

PATIENT
  Age: 30 Year
  Sex: Female
  Weight: 77.18 kg

DRUGS (4)
  1. PLAN B ONE-STEP [Suspect]
     Indication: POST COITAL CONTRACEPTION
     Dosage: 1.5 MILLIGRAM DAILY;
     Route: 048
     Dates: start: 20130830, end: 20130830
  2. INVEGA [Concomitant]
     Indication: BIPOLAR DISORDER
  3. TRILEPTAL [Concomitant]
     Indication: MOOD SWINGS
  4. PRESTIQUE [Concomitant]
     Indication: DEPRESSION

REACTIONS (3)
  - Hot flush [Not Recovered/Not Resolved]
  - Abdominal distension [Not Recovered/Not Resolved]
  - Pollakiuria [Not Recovered/Not Resolved]
